FAERS Safety Report 24309706 (Version 5)
Quarter: 2025Q2

REPORT INFORMATION
  Report Type: Spontaneous
  Country: US (occurrence: US)
  Receive Date: 20240912
  Receipt Date: 20250615
  Transmission Date: 20250716
  Serious: No
  Sender: SANOFI AVENTIS
  Company Number: US-SA-2024SA262366

PATIENT
  Age: 46 Year
  Sex: Female

DRUGS (5)
  1. DUPIXENT [Suspect]
     Active Substance: DUPILUMAB
     Indication: Orthostatic hypotension
     Dosage: 600 MG, QOW
     Route: 058
     Dates: start: 202208, end: 202208
  2. DUPIXENT [Suspect]
     Active Substance: DUPILUMAB
     Indication: Autonomic neuropathy
     Dosage: 300 MG, QOW
     Route: 058
     Dates: start: 202210
  3. DUPIXENT [Suspect]
     Active Substance: DUPILUMAB
     Indication: Asthma
  4. DROXIDOPA [Concomitant]
     Active Substance: DROXIDOPA
  5. ZOLOFT [Concomitant]
     Active Substance: SERTRALINE HYDROCHLORIDE

REACTIONS (12)
  - Blepharospasm [Unknown]
  - Stress [Unknown]
  - Tooth loss [Unknown]
  - Fatigue [Unknown]
  - Ocular discomfort [Unknown]
  - Periorbital swelling [Unknown]
  - Urinary tract infection [Unknown]
  - Vision blurred [Recovered/Resolved]
  - Dry eye [Recovering/Resolving]
  - Asthma [Unknown]
  - Product use in unapproved indication [Unknown]
  - Extra dose administered [Unknown]

NARRATIVE: CASE EVENT DATE: 20220801
